FAERS Safety Report 6150221-5 (Version None)
Quarter: 2009Q2

REPORT INFORMATION
  Report Type: 
  Country: None (occurrence: None)
  Receive Date: 20090409
  Receipt Date: 20090401
  Transmission Date: 20091009
  Serious: Yes (Other)
  Sender: FDA-Public Use
  Company Number: US-B.I. PHARMACEUTICALS,INC./RIDGEFIELD-2008-BP-01170BP

PATIENT
  Age: 55 Year
  Sex: Female

DRUGS (2)
  1. MIRAPEX [Suspect]
     Indication: PARKINSON'S DISEASE
     Dosage: 3MG
     Route: 048
     Dates: start: 20030213
  2. PAXIL [Concomitant]
     Indication: DEPRESSION
     Dosage: 10MG
     Route: 048

REACTIONS (9)
  - DEPRESSION [None]
  - DISABILITY [None]
  - DISTURBANCE IN ATTENTION [None]
  - DYSGRAPHIA [None]
  - MOVEMENT DISORDER [None]
  - NOCTURIA [None]
  - OBSESSIVE-COMPULSIVE DISORDER [None]
  - PATHOLOGICAL GAMBLING [None]
  - POOR PERSONAL HYGIENE [None]
